FAERS Safety Report 25871835 (Version 2)
Quarter: 2025Q4

REPORT INFORMATION
  Report Type: Spontaneous
  Country: US (occurrence: US)
  Receive Date: 20251001
  Receipt Date: 20251210
  Transmission Date: 20260117
  Serious: No
  Sender: SANOFI AVENTIS
  Company Number: US-SA-2025SA290836

PATIENT
  Age: 76 Year
  Sex: Female

DRUGS (2)
  1. KEVZARA [Suspect]
     Active Substance: SARILUMAB
     Dosage: 200 MG, QOW
     Route: 058
  2. KEVZARA [Suspect]
     Active Substance: SARILUMAB
     Dosage: 150 MG, QOW
     Route: 058

REACTIONS (4)
  - Pain [Unknown]
  - Injection site rash [Unknown]
  - Injection site erythema [Unknown]
  - Injection site pruritus [Unknown]
